FAERS Safety Report 8107180-5 (Version None)
Quarter: 2012Q1

REPORT INFORMATION
  Report Type: 
  Country: None (occurrence: None)
  Receive Date: 20120202
  Receipt Date: 20120118
  Transmission Date: 20120608
  Serious: Yes (Other)
  Sender: FDA-Public Use
  Company Number: CH-PFIZER INC-2012015583

PATIENT
  Age: 29 Year
  Sex: Male

DRUGS (4)
  1. CARBOPLATIN [Suspect]
  2. ETOPOSIDE [Suspect]
  3. BLEOMYCIN SULFATE [Suspect]
  4. CISPLATIN [Suspect]

REACTIONS (3)
  - CEREBRAL VENOUS THROMBOSIS [None]
  - CONVULSION [None]
  - SUBARACHNOID HAEMORRHAGE [None]
